FAERS Safety Report 8277995 (Version 3)
Quarter: 2016Q4

REPORT INFORMATION
  Report Type: Report from Study
  Country: TR (occurrence: TR)
  Receive Date: 20111207
  Receipt Date: 20161205
  Transmission Date: 20170207
  Serious: Yes (Hospitalization)
  Sender: FDA-Public Use
  Company Number: TR-ROCHE-1016634

PATIENT
  Age: 37 Year
  Sex: Female
  Weight: 58 kg

DRUGS (2)
  1. PEG-INTERFERON ALFA 2A [Suspect]
     Active Substance: PEGINTERFERON ALFA-2A
     Indication: HEPATITIS D
     Dosage: LAST DOSE PRIOR TO EVENT: 28-SEP-2011
     Route: 058
     Dates: start: 20101027
  2. BLINDED TENOFOVIR [Suspect]
     Active Substance: TENOFOVIR
     Indication: HEPATITIS D
     Dosage: QD, LAST DOSE PRIOR TO EVENT: 14-OCT-201
     Route: 048
     Dates: start: 20101027

REACTIONS (1)
  - Leukoplakia oral [Not Recovered/Not Resolved]

NARRATIVE: CASE EVENT DATE: 20110915
